FAERS Safety Report 21779645 (Version 6)
Quarter: 2023Q1

REPORT INFORMATION
  Report Type: Report from Study
  Country: US (occurrence: US)
  Receive Date: 20221226
  Receipt Date: 20230320
  Transmission Date: 20230418
  Serious: Yes (Life-Threatening, Hospitalization, Other)
  Sender: FDA-Public Use
  Company Number: US-002147023-NVSC2022US295999

PATIENT
  Age: 60 Year
  Sex: Male

DRUGS (1)
  1. ENTRESTO [Suspect]
     Active Substance: SACUBITRIL\VALSARTAN
     Indication: Cardiac failure
     Dosage: 1 DOSAGE FORM, BID
     Route: 048
     Dates: start: 20221001

REACTIONS (13)
  - Feeling abnormal [Unknown]
  - Pneumonia [Recovering/Resolving]
  - Cardiac dysfunction [Unknown]
  - Fear of surgery [Unknown]
  - Depression [Unknown]
  - Crying [Unknown]
  - Fluid retention [Recovering/Resolving]
  - Dyspnoea [Recovering/Resolving]
  - Amnesia [Unknown]
  - Weight decreased [Recovered/Resolved]
  - Gait disturbance [Unknown]
  - Post procedural infection [Recovering/Resolving]
  - Product use issue [Unknown]

NARRATIVE: CASE EVENT DATE: 20221101
